FAERS Safety Report 9695400 (Version 2)
Quarter: 2014Q2

REPORT INFORMATION
  Report Type: Spontaneous
  Country: JP (occurrence: JP)
  Receive Date: 20131119
  Receipt Date: 20140513
  Transmission Date: 20141212
  Serious: Yes (Other)
  Sender: FDA-Public Use
  Company Number: JP-PFIZER INC-2013323058

PATIENT
  Age: 58 Year
  Sex: Female

DRUGS (1)
  1. AZULFIDINE EN [Suspect]
     Dosage: UNK
     Route: 048
     Dates: start: 201210, end: 201211

REACTIONS (1)
  - Interstitial lung disease [Unknown]
